FAERS Safety Report 4620323-0 (Version None)
Quarter: 2005Q1

REPORT INFORMATION
  Report Type: 
  Country: None (occurrence: None)
  Receive Date: 20050324
  Receipt Date: 20050303
  Transmission Date: 20050727
  Serious: Yes (Hospitalization, Other)
  Sender: FDA-Public Use
  Company Number: DE_050315381

PATIENT
  Age: 77 Year
  Sex: Female
  Weight: 96 kg

DRUGS (7)
  1. YENTREVE (DULOXETINE HYDROCHLORIDE) [Suspect]
     Indication: URINARY INCONTINENCE
     Dosage: 40 MG/2 DAY
     Dates: start: 20050131, end: 20050220
  2. RAMIPRIL [Concomitant]
  3. FURO (FUROSEMIDE) [Concomitant]
  4. ALLOPURINOL [Concomitant]
  5. ACETYLSALICYLIC ACID SRT [Concomitant]
  6. LIMPTAR [Concomitant]
  7. ORELOX (CEFPODOXIME PROXETIL) [Concomitant]

REACTIONS (3)
  - DIZZINESS [None]
  - FALL [None]
  - SKIN LACERATION [None]
